FAERS Safety Report 5815922-4 (Version None)
Quarter: 2008Q3

REPORT INFORMATION
  Report Type: 
  Country: None (occurrence: None)
  Receive Date: 20080721
  Receipt Date: 20080710
  Transmission Date: 20090109
  Serious: Yes (Other)
  Sender: FDA-Public Use
  Company Number: BR-ROCHE-575726

PATIENT
  Age: 54 Year
  Sex: Female
  Weight: 72 kg

DRUGS (3)
  1. ORLISTAT [Suspect]
     Indication: WEIGHT CONTROL
     Route: 048
     Dates: start: 20080601
  2. SERTRALINE [Concomitant]
     Indication: DEPRESSION
  3. CALCIUM [Concomitant]
     Indication: OSTEOPOROSIS

REACTIONS (1)
  - HAEMATOCHEZIA [None]
